FAERS Safety Report 6585137-3 (Version None)
Quarter: 2010Q1

REPORT INFORMATION
  Report Type: 
  Country: None (occurrence: None)
  Receive Date: 20100217
  Receipt Date: 20100205
  Transmission Date: 20100710
  Serious: Yes (Hospitalization)
  Sender: FDA-Public Use
  Company Number: GB-ROCHE-684303

PATIENT
  Age: 39 Year
  Sex: Female
  Weight: 52 kg

DRUGS (18)
  1. CLONAZEPAM [Suspect]
     Indication: DRUG USE FOR UNKNOWN INDICATION
     Route: 048
  2. CLONAZEPAM [Suspect]
     Dosage: DOSE INCREASED
     Route: 048
  3. FOLIC ACID [Suspect]
     Indication: DRUG USE FOR UNKNOWN INDICATION
     Route: 065
  4. ISOFLURANE [Suspect]
     Indication: INDUCTION OF ANAESTHESIA
     Route: 055
  5. LACTULOSE [Suspect]
     Indication: DRUG USE FOR UNKNOWN INDICATION
     Route: 065
  6. OLANZAPINE [Suspect]
     Indication: DRUG USE FOR UNKNOWN INDICATION
     Route: 065
  7. THIOPENTAL SODIUM [Suspect]
     Indication: INDUCTION OF ANAESTHESIA
     Route: 065
  8. AMOXICILLIN AND CLAVULANATE POTASSIUM [Concomitant]
  9. HARTMANN'S SOLUTION FOR INJECTION [Concomitant]
     Dosage: DRUG NAME REPORTED AS HARTMANN'S SOLUTION
  10. METOCLOPRAMIDE [Concomitant]
     Indication: INDUCTION OF ANAESTHESIA
     Route: 042
  11. OXYTOCIN [Concomitant]
  12. RANITIDINE [Concomitant]
     Indication: INDUCTION OF ANAESTHESIA
     Route: 042
  13. SODIUM CITRATE [Concomitant]
     Indication: INDUCTION OF ANAESTHESIA
     Route: 048
  14. SUCCINYLCHOLINE CHLORIDE [Concomitant]
     Indication: INDUCTION OF ANAESTHESIA
  15. PROPOFOL [Concomitant]
     Indication: SEDATION
  16. ATRACURIUM [Concomitant]
     Indication: SEDATION
  17. FENTANYL-100 [Concomitant]
     Indication: SEDATION
  18. NORADRENALINE [Concomitant]
     Indication: BLOOD PRESSURE MANAGEMENT
     Dosage: FORM: INFUSION

REACTIONS (12)
  - AGITATION [None]
  - AKATHISIA [None]
  - ANTIPSYCHOTIC DRUG LEVEL INCREASED [None]
  - BLOOD CREATININE INCREASED [None]
  - COMA SCALE ABNORMAL [None]
  - CONFUSIONAL STATE [None]
  - DELAYED RECOVERY FROM ANAESTHESIA [None]
  - DISORIENTATION [None]
  - HYDRONEPHROSIS [None]
  - RENAL IMPAIRMENT [None]
  - THERAPEUTIC AGENT TOXICITY [None]
  - URINOMA [None]
